FAERS Safety Report 6590935-6 (Version None)
Quarter: 2010Q1

REPORT INFORMATION
  Report Type: 
  Country: None (occurrence: None)
  Receive Date: 20100219
  Receipt Date: 20100128
  Transmission Date: 20100710
  Serious: No
  Sender: FDA-Public Use
  Company Number: US-SOLVAY-00210000607

PATIENT
  Sex: Female
  Weight: 72.272 kg

DRUGS (1)
  1. ANDROGEL [Suspect]
     Indication: ACCIDENTAL EXPOSURE
     Dosage: DAILY DOSE:  UNKNOWN, FREQUENCY: ONCE A DAY
     Route: 062
     Dates: start: 20100107

REACTIONS (5)
  - CHILLS [None]
  - ERYTHEMA [None]
  - FEELING HOT [None]
  - MALAISE [None]
  - PRURITUS GENERALISED [None]
